FAERS Safety Report 13337098 (Version 1)
Quarter: 2017Q1

REPORT INFORMATION
  Report Type: Spontaneous
  Country: US (occurrence: US)
  Receive Date: 20170315
  Receipt Date: 20170315
  Transmission Date: 20170428
  Serious: No
  Sender: FDA-Public Use
  Company Number: US-PFIZER INC-2017110647

PATIENT
  Age: 72 Year
  Sex: Female
  Weight: 74 kg

DRUGS (1)
  1. LYRICA [Suspect]
     Active Substance: PREGABALIN
     Indication: BACK PAIN
     Dosage: 50 MG, DAILY ^TO TAKE ONE FOR TWO DAYS THEN TWO AFTERWARDS^
     Route: 048
     Dates: start: 20170305

REACTIONS (7)
  - Bone pain [Not Recovered/Not Resolved]
  - Malaise [Not Recovered/Not Resolved]
  - Pyrexia [Recovered/Resolved]
  - Myalgia [Not Recovered/Not Resolved]
  - Ligament pain [Not Recovered/Not Resolved]
  - Dizziness [Not Recovered/Not Resolved]
  - Pain of skin [Not Recovered/Not Resolved]
